FAERS Safety Report 9416803 (Version 2)
Quarter: 2014Q3

REPORT INFORMATION
  Report Type: Spontaneous
  Country: US (occurrence: US)
  Receive Date: 20130724
  Receipt Date: 20140723
  Transmission Date: 20150326
  Serious: No
  Sender: FDA-Public Use
  Company Number: US-GALDERMA-US13000566

PATIENT
  Age: 83 Year
  Sex: Female
  Weight: 73 kg

DRUGS (5)
  1. ABREVA [Concomitant]
     Active Substance: DOCOSANOL
  2. VITAMINS [Concomitant]
     Active Substance: VITAMINS
     Route: 048
  3. COSMETICS [Concomitant]
     Active Substance: COSMETICS
  4. ORACEA [Suspect]
     Active Substance: DOXYCYCLINE
     Indication: ROSACEA
     Route: 048
     Dates: start: 20130213
  5. ORACEA [Suspect]
     Active Substance: DOXYCYCLINE
     Route: 048
     Dates: start: 2013

REACTIONS (2)
  - Palpitations [Recovered/Resolved]
  - Tremor [Recovered/Resolved]

NARRATIVE: CASE EVENT DATE: 20130217
